FAERS Safety Report 7540870-1 (Version None)
Quarter: 2011Q2

REPORT INFORMATION
  Report Type: 
  Country: None (occurrence: None)
  Receive Date: 20110610
  Receipt Date: 20110531
  Transmission Date: 20111010
  Serious: Yes (Other)
  Sender: FDA-Public Use
  Company Number: FR-UCBSA-034268

PATIENT
  Age: 76 Year
  Sex: Male

DRUGS (2)
  1. EDEX [Suspect]
     Dosage: 20MCG/INJECTION
     Route: 017
     Dates: start: 20100501
  2. EDEX [Suspect]
     Indication: ERECTILE DYSFUNCTION
     Dosage: 10MCG/INJECTION
     Route: 017
     Dates: end: 20100501

REACTIONS (1)
  - MONOPLEGIA [None]
